FAERS Safety Report 17320592 (Version 1)
Quarter: 2020Q1

REPORT INFORMATION
  Report Type: Other
  Country: US (occurrence: US)
  Receive Date: 20200126
  Receipt Date: 20200126
  Transmission Date: 20200409
  Serious: Yes (Hospitalization)
  Sender: FDA-Public Use
  Company Number: US-ACORDA-ACO_157524_2019

PATIENT
  Age: 59 Year
  Sex: Male

DRUGS (12)
  1. AMPYRA [Suspect]
     Active Substance: DALFAMPRIDINE
     Dosage: 10 MILLIGRAM, BID
     Route: 048
     Dates: start: 20170926
  2. LEMTRADA [Concomitant]
     Active Substance: ALEMTUZUMAB
     Indication: PRODUCT USED FOR UNKNOWN INDICATION
     Dosage: 12 MG/1.2 ML
     Route: 042
     Dates: start: 201701
  3. REPLESTA [Concomitant]
     Active Substance: CHOLECALCIFEROL
     Indication: PRODUCT USED FOR UNKNOWN INDICATION
     Dosage: 50000 UNIT, WEEKLY
     Route: 048
     Dates: start: 20171018
  4. ASPIRIN 81 DELAYED RELEASE [Concomitant]
     Indication: PRODUCT USED FOR UNKNOWN INDICATION
     Dosage: 81 MG, QD
     Route: 048
  5. SOTALOL. [Concomitant]
     Active Substance: SOTALOL
     Indication: PRODUCT USED FOR UNKNOWN INDICATION
     Dosage: 120 MG, BID
     Route: 048
  6. DILTIAZEM. [Concomitant]
     Active Substance: DILTIAZEM
     Indication: PRODUCT USED FOR UNKNOWN INDICATION
     Dosage: 120 MG, QD
     Route: 048
  7. LOSARTAN. [Concomitant]
     Active Substance: LOSARTAN
     Indication: PRODUCT USED FOR UNKNOWN INDICATION
     Dosage: 50 MG, QD
     Route: 048
  8. OMEPRAZOLE. [Concomitant]
     Active Substance: OMEPRAZOLE
     Indication: PRODUCT USED FOR UNKNOWN INDICATION
     Dosage: 40 MILLIGRAM, QD (30 MINUTES BEFORE BREAKFAST)
     Route: 065
     Dates: start: 20170503
  9. LEMTRADA [Concomitant]
     Active Substance: ALEMTUZUMAB
     Dosage: 12 MG/1.2 ML
     Route: 042
     Dates: start: 20180326
  10. FLOMAX [Concomitant]
     Active Substance: TAMSULOSIN HYDROCHLORIDE
     Indication: PRODUCT USED FOR UNKNOWN INDICATION
     Dosage: 0.4 MG, 2 CAPSULES NIGHTLY
     Route: 048
     Dates: start: 20170306
  11. AMPYRA [Suspect]
     Active Substance: DALFAMPRIDINE
     Indication: MULTIPLE SCLEROSIS
     Dosage: 10 MILLIGRAM, QD
     Route: 048
     Dates: start: 20170914
  12. VESICARE [Concomitant]
     Active Substance: SOLIFENACIN SUCCINATE
     Indication: PRODUCT USED FOR UNKNOWN INDICATION
     Dosage: 10 MG, QD
     Route: 048

REACTIONS (13)
  - Influenza like illness [Recovered/Resolved]
  - Dehydration [Recovered/Resolved]
  - Muscular weakness [Unknown]
  - Sensory loss [Unknown]
  - Urinary tract infection [Recovered/Resolved]
  - Urinary tract infection [Recovered/Resolved]
  - Lymphocyte count decreased [Unknown]
  - Palpitations [Recovered/Resolved]
  - Condition aggravated [Unknown]
  - Urinary tract infection [Recovered/Resolved]
  - Urinary tract infection [Recovered/Resolved]
  - Atrial fibrillation [Recovered/Resolved]
  - Nervous system disorder [Unknown]

NARRATIVE: CASE EVENT DATE: 201801
